FAERS Safety Report 11279144 (Version 1)
Quarter: 2015Q3

REPORT INFORMATION
  Report Type: Spontaneous
  Country: PT (occurrence: None)
  Receive Date: 20150715
  Receipt Date: 20150715
  Transmission Date: 20151125
  Serious: No
  Sender: FDA-Public Use
  Company Number: PT-LHC-2015083

PATIENT
  Age: 53 Year
  Sex: Male

DRUGS (1)
  1. OXIGENIO MEDICINAL LINDE (OXYGEN) (GAS FOR INHALATION) (VERUM) [Suspect]
     Active Substance: OXYGEN
     Indication: PRODUCT USED FOR UNKNOWN INDICATION
     Route: 055

REACTIONS (4)
  - Middle insomnia [None]
  - Malaise [None]
  - Abnormal dreams [None]
  - Headache [None]

NARRATIVE: CASE EVENT DATE: 20150629
